FAERS Safety Report 6191370-5 (Version None)
Quarter: 2009Q2

REPORT INFORMATION
  Report Type: 
  Country: None (occurrence: None)
  Receive Date: 20090515
  Receipt Date: 20071227
  Transmission Date: 20091009
  Serious: Yes (Hospitalization)
  Sender: FDA-Public Use
  Company Number: US-ASTRAZENECA-2007UW10887

PATIENT
  Age: 737 Month
  Sex: Male
  Weight: 111.6 kg

DRUGS (30)
  1. SEROQUEL [Suspect]
     Indication: DEPRESSION
     Route: 048
     Dates: start: 20021201, end: 20060301
  2. RISPERDAL [Concomitant]
     Route: 065
  3. FOLIC ACID [Concomitant]
     Route: 048
  4. THIAMINE HCL [Concomitant]
     Route: 065
  5. HYDROCHLOROTHIAZIDE [Concomitant]
     Route: 048
  6. METOPROLOL [Concomitant]
     Route: 048
  7. OMEPRAZOL [Concomitant]
     Route: 065
  8. VITAMINS [Concomitant]
     Route: 065
  9. TYLENOL [Concomitant]
     Route: 048
  10. HYDROXYZINE PAMOATE [Concomitant]
     Route: 065
  11. PAROXETINE HCL [Concomitant]
     Route: 065
  12. MOTRIN [Concomitant]
     Route: 048
  13. EFFEXOR [Concomitant]
     Route: 065
  14. VISTARIL [Concomitant]
     Route: 065
  15. NOVOLIN [Concomitant]
     Dosage: 2 UNITS TWO TIMES A DAY
     Route: 058
  16. LOPRESSOR [Concomitant]
     Route: 065
  17. CINNAMON [Concomitant]
     Route: 065
  18. BIOTIN [Concomitant]
     Route: 065
  19. GAVISCON [Concomitant]
     Dosage: TWO TABLETS AFTER MEALS
     Route: 048
  20. WELLBUTRIN [Concomitant]
     Route: 065
  21. LORAZEPAM [Concomitant]
     Route: 065
  22. COQ10 [Concomitant]
     Route: 065
  23. TRAMADOL [Concomitant]
     Route: 065
  24. VENLAFAXINE HCL [Concomitant]
     Route: 065
  25. BUSPIRONE HCL [Concomitant]
     Route: 065
  26. GABAPENTIN [Concomitant]
     Route: 065
  27. ASPIRIN [Concomitant]
     Route: 065
  28. NEURONTIN [Concomitant]
     Dosage: 300-900 MG
     Route: 048
  29. PERCOCET [Concomitant]
     Route: 065
  30. MILK THISTLE [Concomitant]
     Route: 065

REACTIONS (17)
  - ABDOMINAL PAIN [None]
  - ALCOHOLISM [None]
  - BACK PAIN [None]
  - BURSITIS [None]
  - DENTAL CARIES [None]
  - HYPERTENSION [None]
  - IMPAIRED FASTING GLUCOSE [None]
  - NON-CARDIAC CHEST PAIN [None]
  - PAIN IN EXTREMITY [None]
  - PAROTITIS [None]
  - POST-TRAUMATIC STRESS DISORDER [None]
  - ROTATOR CUFF SYNDROME [None]
  - SUBSTANCE ABUSE [None]
  - TENDONITIS [None]
  - TOOTH DEPOSIT [None]
  - TOOTH DISORDER [None]
  - TYPE 2 DIABETES MELLITUS [None]
